FAERS Safety Report 21264925 (Version 1)
Quarter: 2022Q3

REPORT INFORMATION
  Report Type: Other
  Country: US (occurrence: None)
  Receive Date: 20220829
  Receipt Date: 20220829
  Transmission Date: 20221027
  Serious: Yes (Hospitalization, Other)
  Sender: FDA-Public Use
  Company Number: US-ROCHE-3122558

PATIENT
  Sex: Male
  Weight: 88.984 kg

DRUGS (10)
  1. OCREVUS [Suspect]
     Active Substance: OCRELIZUMAB
     Indication: Relapsing multiple sclerosis
     Dosage: DATE OF TREATMENT: 29/JUN/2020
     Route: 065
     Dates: start: 201809
  2. MODAFINIL [Concomitant]
     Active Substance: MODAFINIL
     Indication: Fatigue
     Dosage: ONCE IN THE MORNING AND ONCE AT NIGHT
     Route: 048
  3. TYLENOL [Concomitant]
     Active Substance: ACETAMINOPHEN
     Indication: Headache
     Route: 048
  4. EXCEDRIN (UNITED STATES) [Concomitant]
     Indication: Headache
     Route: 048
  5. FLUOXETINE [Concomitant]
     Active Substance: FLUOXETINE HYDROCHLORIDE
     Indication: Depression
     Dosage: TAKES MEDICATION IN THE MORNING
     Route: 048
  6. TRAMADOL [Concomitant]
     Active Substance: TRAMADOL
     Indication: Back pain
     Dosage: PATIENT TAKES IT EVERY FOUR HOURS BUT IT IS PRESCRIBED FOR ^AS NEEDED^
     Route: 048
  7. TRAMADOL [Concomitant]
     Active Substance: TRAMADOL
     Indication: Sciatica
  8. TIZANIDINE [Concomitant]
     Active Substance: TIZANIDINE
     Dosage: PATIENT STATES HE TAKES THIS MEDICATION EVERY ONE TO TWO HOURS
     Route: 048
  9. TESSALON [Concomitant]
     Active Substance: BENZONATATE
  10. ZOFRAN [Concomitant]
     Active Substance: ONDANSETRON HYDROCHLORIDE

REACTIONS (7)
  - COVID-19 [Unknown]
  - COVID-19 pneumonia [Not Recovered/Not Resolved]
  - Off label use [Unknown]
  - Tremor [Not Recovered/Not Resolved]
  - Dyspnoea [Unknown]
  - Cerebrovascular accident [Unknown]
  - Muscular weakness [Unknown]

NARRATIVE: CASE EVENT DATE: 20220101
